FAERS Safety Report 11788142 (Version 1)
Quarter: 2015Q4

REPORT INFORMATION
  Report Type: Report from Study
  Country: CA (occurrence: CA)
  Receive Date: 20151201
  Receipt Date: 20151201
  Transmission Date: 20160305
  Serious: Yes (Hospitalization, Other)
  Sender: FDA-Public Use
  Company Number: CA-ROCHE-1610121

PATIENT
  Sex: Female
  Weight: 102.5 kg

DRUGS (13)
  1. FOLIC ACID. [Concomitant]
     Active Substance: FOLIC ACID
  2. NITRO SPRAY [Concomitant]
  3. ACTEMRA [Suspect]
     Active Substance: TOCILIZUMAB
     Indication: RHEUMATOID ARTHRITIS
     Route: 042
     Dates: start: 20141021
  4. VENLAFAXINE [Concomitant]
     Active Substance: VENLAFAXINE HYDROCHLORIDE
  5. PLAQUENIL [Concomitant]
     Active Substance: HYDROXYCHLOROQUINE SULFATE
  6. ATENOLOL. [Concomitant]
     Active Substance: ATENOLOL
  7. AMITRIPTYLINE [Concomitant]
     Active Substance: AMITRIPTYLINE
  8. ORENCIA [Concomitant]
     Active Substance: ABATACEPT
  9. VALSARTAN. [Concomitant]
     Active Substance: VALSARTAN
  10. LASIX [Concomitant]
     Active Substance: FUROSEMIDE
  11. METHOTREXATE [Concomitant]
     Active Substance: METHOTREXATE
  12. RABEPRAZOLE [Concomitant]
     Active Substance: RABEPRAZOLE
  13. LYRICA [Concomitant]
     Active Substance: PREGABALIN

REACTIONS (2)
  - Malaise [Unknown]
  - Cataract [Unknown]
